FAERS Safety Report 5386006-7 (Version None)
Quarter: 2007Q3

REPORT INFORMATION
  Report Type: 
  Country: None (occurrence: None)
  Receive Date: 20070710
  Receipt Date: 20070626
  Transmission Date: 20080115
  Serious: Yes (Death)
  Sender: FDA-Public Use
  Company Number: FABR-12052

PATIENT
  Age: 58 Year
  Sex: Male

DRUGS (2)
  1. FABRAZYME [Suspect]
     Indication: FABRY'S DISEASE
     Dosage: 70 MG Q2WKS IV
     Route: 042
     Dates: start: 20010622, end: 20050101
  2. FABRAZYME [Suspect]
     Indication: FABRY'S DISEASE
     Dosage: 35 MG QWK IV
     Route: 042
     Dates: start: 20050101, end: 20070101

REACTIONS (6)
  - CONDITION AGGRAVATED [None]
  - CORONARY ARTERY BYPASS [None]
  - HAEMODIALYSIS [None]
  - HIP ARTHROPLASTY [None]
  - RENAL FAILURE CHRONIC [None]
  - RENAL TRANSPLANT [None]
